FAERS Safety Report 9253400 (Version 2)
Quarter: 2013Q2

REPORT INFORMATION
  Report Type: Spontaneous
  Country: CA (occurrence: CA)
  Receive Date: 20130425
  Receipt Date: 20130509
  Transmission Date: 20140414
  Serious: Yes (Hospitalization, Other)
  Sender: FDA-Public Use
  Company Number: CA-AMGEN-CANSP2013027499

PATIENT
  Age: 83 Year
  Sex: Female
  Weight: 43.08 kg

DRUGS (3)
  1. PROLIA [Suspect]
     Indication: OSTEOPOROSIS POSTMENOPAUSAL
     Dosage: UNK
     Route: 058
     Dates: start: 20110519, end: 20121019
  2. NITROGLYCERIN [Concomitant]
  3. BISOPROLOL [Concomitant]
     Indication: PALPITATIONS
     Dosage: 5 MG, QD
     Route: 048
     Dates: start: 2011

REACTIONS (3)
  - Syncope [Unknown]
  - Dizziness [Recovered/Resolved]
  - Muscle rigidity [Recovered/Resolved]
